FAERS Safety Report 7078446-5 (Version None)
Quarter: 2010Q4

REPORT INFORMATION
  Report Type: 
  Country: None (occurrence: None)
  Receive Date: 20101102
  Receipt Date: 20101018
  Transmission Date: 20110411
  Serious: Yes (Hospitalization, Other)
  Sender: FDA-Public Use
  Company Number: PHHY2010DE70185

PATIENT
  Sex: Male
  Weight: 105 kg

DRUGS (6)
  1. ALISKIREN ALI+ [Suspect]
     Indication: HYPERTENSION
     Dosage: 300 MG, QD
     Route: 048
     Dates: start: 20081027
  2. RAMIPRIL [Concomitant]
     Indication: HYPERTENSION
     Dosage: 10 MG, QD
     Route: 048
     Dates: start: 20070115
  3. CARVEDILOL [Concomitant]
     Indication: HYPERTENSION
     Dosage: 37.5 MG, QD
     Route: 048
     Dates: start: 20090115
  4. FURORESE [Concomitant]
     Dosage: 125 MG, QD
     Route: 048
     Dates: start: 20090615
  5. ASPIRIN [Concomitant]
     Indication: CORONARY ARTERY DISEASE
     Dosage: 100 MG, QD
     Route: 048
     Dates: start: 20010101
  6. INSULIN [Concomitant]
     Indication: DIABETES MELLITUS

REACTIONS (3)
  - ANGINA PECTORIS [None]
  - ARTERIOGRAM CORONARY [None]
  - ATRIAL FIBRILLATION [None]
